FAERS Safety Report 9730823 (Version 2)
Quarter: 2014Q1

REPORT INFORMATION
  Report Type: Report from Study
  Country: DE (occurrence: DE)
  Receive Date: 20131205
  Receipt Date: 20140127
  Transmission Date: 20141002
  Serious: Yes (Hospitalization)
  Sender: FDA-Public Use
  Company Number: DE-ROCHE-1313412

PATIENT
  Age: 72 Year
  Sex: Female

DRUGS (2)
  1. RITUXIMAB [Suspect]
     Indication: RHEUMATOID ARTHRITIS
     Dosage: LAST DOSE PRIOR TO SAE WAS ON 22/MAY/2012.
     Route: 065
  2. PREDNISOLON [Concomitant]
     Indication: RHEUMATOID ARTHRITIS

REACTIONS (1)
  - Impaired healing [Not Recovered/Not Resolved]
